FAERS Safety Report 4488647-8 (Version None)
Quarter: 2004Q4

REPORT INFORMATION
  Report Type: 
  Country: None (occurrence: None)
  Receive Date: 20041026
  Receipt Date: 20041007
  Transmission Date: 20050328
  Serious: Yes (Hospitalization, Other)
  Sender: FDA-Public Use
  Company Number: USA041080528

PATIENT
  Age: 75 Year
  Sex: Female
  Weight: 60 kg

DRUGS (3)
  1. FORTEO [Suspect]
     Indication: OSTEOPOROSIS
     Dates: start: 20040601
  2. AVAPRO [Concomitant]
  3. ALDACTONE [Concomitant]

REACTIONS (7)
  - ARTHRALGIA [None]
  - BLOOD PRESSURE DECREASED [None]
  - DIFFICULTY IN WALKING [None]
  - LOSS OF CONSCIOUSNESS [None]
  - NEUROPATHY [None]
  - PAIN IN EXTREMITY [None]
  - VITAMIN B12 INCREASED [None]
